FAERS Safety Report 12699955 (Version 1)
Quarter: 2016Q3

REPORT INFORMATION
  Report Type: Spontaneous
  Country: US (occurrence: US)
  Receive Date: 20160830
  Receipt Date: 20160830
  Transmission Date: 20161109
  Serious: Yes (Other)
  Sender: FDA-Public Use
  Company Number: US-MYLANLABS-2016M1035955

PATIENT

DRUGS (2)
  1. EPIPEN JR [Suspect]
     Active Substance: EPINEPHRINE
     Dosage: 0.15 MG, PRN
     Route: 030
     Dates: start: 20160822, end: 20160822
  2. EPIPEN JR [Suspect]
     Active Substance: EPINEPHRINE
     Indication: HYPERSENSITIVITY
     Dosage: 0.15 MG, PRN
     Route: 030
     Dates: start: 20160822, end: 20160822

REACTIONS (2)
  - Expired product administered [Recovered/Resolved]
  - Device failure [Recovered/Resolved]

NARRATIVE: CASE EVENT DATE: 20160822
